FAERS Safety Report 4482704-8 (Version None)
Quarter: 2004Q4

REPORT INFORMATION
  Report Type: 
  Country: None (occurrence: None)
  Receive Date: 20041022
  Receipt Date: 20041008
  Transmission Date: 20050328
  Serious: Yes (Other)
  Sender: FDA-Public Use
  Company Number: PHNR2004AU01485

PATIENT
  Age: 85 Year
  Sex: Male

DRUGS (6)
  1. LAMISIL [Suspect]
     Indication: ONYCHOMYCOSIS
     Dosage: 250MG,DAILY
     Dates: start: 20041003, end: 20041013
  2. ZYLOPRIM [Concomitant]
  3. FELODIPINE [Concomitant]
  4. PROGOUT [Concomitant]
  5. TETREX [Concomitant]
     Dosage: 250MG/DAY
  6. NILSTAT [Concomitant]

REACTIONS (4)
  - DIARRHOEA [None]
  - FEELING ABNORMAL [None]
  - NAUSEA [None]
  - STOMACH DISCOMFORT [None]
